FAERS Safety Report 24327598 (Version 4)
Quarter: 2024Q4

REPORT INFORMATION
  Report Type: Spontaneous
  Country: GB (occurrence: GB)
  Receive Date: 20240917
  Receipt Date: 20241014
  Transmission Date: 20250115
  Serious: Yes (Hospitalization, Other)
  Sender: MYLAN
  Company Number: GB-MLMSERVICE-20240814-PI162505-00306-1

PATIENT
  Age: 63 Year
  Sex: Male

DRUGS (12)
  1. TACROLIMUS [Suspect]
     Active Substance: TACROLIMUS
     Indication: Immunosuppressant drug therapy
     Dosage: UNK
     Route: 065
  2. TACROLIMUS [Suspect]
     Active Substance: TACROLIMUS
     Indication: Heart transplant rejection
     Dosage: UNK (DOSE REDUCED)
     Route: 065
  3. VORICONAZOLE [Suspect]
     Active Substance: VORICONAZOLE
     Indication: Fungal infection
     Dosage: 400 MILLIGRAM, BID (FOR TWO DOSES)
     Route: 048
  4. VORICONAZOLE [Suspect]
     Active Substance: VORICONAZOLE
     Indication: Opportunistic infection
     Dosage: 200 MILLIGRAM, BID
     Route: 048
  5. PREDNISOLONE [Suspect]
     Active Substance: PREDNISOLONE
     Indication: Immunosuppressant drug therapy
     Dosage: UNK (LONG-TERM)
     Route: 065
  6. PREDNISOLONE [Suspect]
     Active Substance: PREDNISOLONE
     Indication: Heart transplant rejection
     Dosage: 5 MILLIGRAM, QD
     Route: 065
  7. PREDNISOLONE [Suspect]
     Active Substance: PREDNISOLONE
     Dosage: UNK (DOSE REDUCED)
     Route: 065
  8. MYCOPHENOLATE MOFETIL [Suspect]
     Active Substance: MYCOPHENOLATE MOFETIL
     Indication: Immunosuppressant drug therapy
     Dosage: UNK
     Route: 065
  9. MYCOPHENOLATE MOFETIL [Suspect]
     Active Substance: MYCOPHENOLATE MOFETIL
     Indication: Heart transplant rejection
  10. METHYLPREDNISOLONE [Suspect]
     Active Substance: METHYLPREDNISOLONE
     Indication: Immunosuppressant drug therapy
     Dosage: 1 GRAM, QD (FOR 3 DAYS)
     Route: 065
  11. METHYLPREDNISOLONE [Suspect]
     Active Substance: METHYLPREDNISOLONE
     Indication: Heart transplant rejection
     Dosage: UNK
     Route: 065
  12. FLUCLOXACILLIN [Interacting]
     Active Substance: FLUCLOXACILLIN
     Indication: Skin mass
     Dosage: UNK
     Route: 048

REACTIONS (9)
  - Fungal skin infection [Recovered/Resolved]
  - Fungal infection [Recovered/Resolved]
  - Fusarium infection [Recovered/Resolved]
  - Transplant rejection [Recovering/Resolving]
  - Aspergillus infection [Recovered/Resolved]
  - Urinary tract infection [Recovering/Resolving]
  - Renal impairment [Unknown]
  - Alopecia [Unknown]
  - Photosensitivity reaction [Unknown]
